FAERS Safety Report 10676552 (Version 2)
Quarter: 2015Q1

REPORT INFORMATION
  Report Type: Spontaneous
  Country: TR (occurrence: TR)
  Receive Date: 20141226
  Receipt Date: 20150112
  Transmission Date: 20150720
  Serious: Yes (Death)
  Sender: FDA-Public Use
  Company Number: PHHY2014TR168322

PATIENT
  Age: 27 Year
  Sex: Female

DRUGS (1)
  1. TOBI [Suspect]
     Active Substance: TOBRAMYCIN
     Indication: CYSTIC FIBROSIS
     Dosage: 300 MG, BID (300MG/5ML, EVERY MORNING AND EVENING)
     Route: 055
     Dates: start: 20100101

REACTIONS (1)
  - Cystic fibrosis [Fatal]

NARRATIVE: CASE EVENT DATE: 201412
